FAERS Safety Report 25858318 (Version 1)
Quarter: 2025Q3

REPORT INFORMATION
  Report Type: Report from Study
  Country: EU (occurrence: EU)
  Receive Date: 20250929
  Receipt Date: 20250929
  Transmission Date: 20251021
  Serious: Yes (Other)
  Sender: ABBVIE
  Company Number: EU-ABBVIE-6252553

PATIENT
  Sex: Female
  Weight: 61 kg

DRUGS (2)
  1. ELAHERE [Suspect]
     Active Substance: MIRVETUXIMAB SORAVTANSINE-GYNX
     Indication: Ovarian epithelial cancer
     Dosage: DOSE REDUCTION TO APROXIMATELY 285/290MG
     Route: 042
  2. ELAHERE [Suspect]
     Active Substance: MIRVETUXIMAB SORAVTANSINE-GYNX
     Indication: Ovarian epithelial cancer
     Route: 042

REACTIONS (4)
  - Keratopathy [Unknown]
  - Ocular toxicity [Unknown]
  - Dose calculation error [Unknown]
  - Intercepted medication error [Unknown]
